FAERS Safety Report 13818847 (Version 2)
Quarter: 2017Q3

REPORT INFORMATION
  Report Type: Spontaneous
  Country: CN (occurrence: CN)
  Receive Date: 20170801
  Receipt Date: 20170808
  Transmission Date: 20171127
  Serious: Yes (Hospitalization, Other)
  Sender: FDA-Public Use
  Company Number: CN-BAYER-2017-145904

PATIENT
  Age: 57 Year
  Sex: Male

DRUGS (1)
  1. ULTRAVIST [Suspect]
     Active Substance: IOPROMIDE
     Indication: ARTERIOGRAM CORONARY
     Dosage: 100 ML, ONCE
     Route: 022
     Dates: start: 20170615, end: 20170615

REACTIONS (11)
  - Laryngeal oedema [Recovering/Resolving]
  - Electrocardiogram ST segment elevation [None]
  - Unresponsive to stimuli [Recovering/Resolving]
  - Coronary artery stenosis [None]
  - Cough [None]
  - Erythema [Recovering/Resolving]
  - Electrocardiogram ST segment depression [None]
  - Hypersensitivity [Recovering/Resolving]
  - Dyspnoea [None]
  - Chest discomfort [None]
  - Anaphylactic shock [Recovering/Resolving]

NARRATIVE: CASE EVENT DATE: 20170615
